FAERS Safety Report 4661146-6 (Version None)
Quarter: 2005Q2

REPORT INFORMATION
  Report Type: 
  Country: None (occurrence: None)
  Receive Date: 20050511
  Receipt Date: 20050426
  Transmission Date: 20051028
  Serious: Yes (Hospitalization)
  Sender: FDA-Public Use
  Company Number: MEDI-0003269

PATIENT
  Sex: Male

DRUGS (10)
  1. SYNAGIS [Suspect]
     Indication: ANTIVIRAL PROPHYLAXIS
     Dosage: SEE IMAGE
     Dates: start: 20031218, end: 20040302
  2. SYNAGIS [Suspect]
     Indication: ANTIVIRAL PROPHYLAXIS
     Dosage: SEE IMAGE
     Dates: start: 20031218
  3. SYNAGIS [Suspect]
     Indication: ANTIVIRAL PROPHYLAXIS
     Dosage: SEE IMAGE
     Dates: start: 20040114
  4. SYNAGIS [Suspect]
     Indication: ANTIVIRAL PROPHYLAXIS
     Dosage: SEE IMAGE
     Dates: start: 20040209
  5. ALFACALCIDOL (ALFACALCIDOL) [Concomitant]
  6. EPOETIN ALFA (EPOETIN ALFA) [Concomitant]
  7. FERRIC PYROPHOSPHATE (FERRIC PYROPHOSPHATE) [Concomitant]
  8. TOCOPHEROL NICOTINATE (TOCOPHERYL NICOTINATE) [Concomitant]
  9. ALPROSTADIL ALFADEX (ALPROSTADIL ALFADEX) [Concomitant]
  10. AZULENE (AZULENE) [Concomitant]

REACTIONS (1)
  - ASTHMA [None]
